FAERS Safety Report 5639220-7 (Version None)
Quarter: 2008Q1

REPORT INFORMATION
  Report Type: 
  Country: None (occurrence: None)
  Receive Date: 20080226
  Receipt Date: 20080130
  Transmission Date: 20080703
  Serious: No
  Sender: FDA-Public Use
  Company Number: US-BOEHRINGER INGELHEIM GMBH, GERMANY-2008-BP-01422BP

PATIENT
  Age: 72 Year
  Sex: Female

DRUGS (5)
  1. MICARDIS HCT [Suspect]
     Indication: HYPERTENSION
     Dosage: 80 MG/12.5 MG
     Route: 048
     Dates: start: 20070901
  2. NEXIUM [Concomitant]
     Indication: GASTROOESOPHAGEAL REFLUX DISEASE
  3. FISH OIL [Concomitant]
  4. ASPIRIN [Concomitant]
  5. ULTRAM [Concomitant]

REACTIONS (1)
  - ALOPECIA [None]
